FAERS Safety Report 16159250 (Version 1)
Quarter: 2019Q2

REPORT INFORMATION
  Report Type: Spontaneous
  Country: CA (occurrence: CA)
  Receive Date: 20190404
  Receipt Date: 20190404
  Transmission Date: 20190711
  Serious: Yes (Hospitalization)
  Sender: FDA-Public Use
  Company Number: CA-PURDUE PHARMA-CAN-2019-0009861

PATIENT
  Age: 47 Year
  Sex: Male

DRUGS (5)
  1. MORPHINE SULFATE. [Suspect]
     Active Substance: MORPHINE SULFATE
     Indication: PRODUCT USED FOR UNKNOWN INDICATION
     Dosage: UNK
     Route: 065
  2. SANDOSTATIN [Suspect]
     Active Substance: OCTREOTIDE ACETATE
     Indication: METASTATIC CARCINOID TUMOUR
     Dosage: 30 MG, MONTHLY
     Route: 030
  3. SANDOSTATIN [Suspect]
     Active Substance: OCTREOTIDE ACETATE
     Dosage: 30 MG, UNK
     Route: 030
  4. SANDOSTATIN [Suspect]
     Active Substance: OCTREOTIDE ACETATE
     Dosage: 20 MG, MONTHLY
     Route: 030
  5. SANDOSTATIN [Suspect]
     Active Substance: OCTREOTIDE ACETATE
     Dosage: 100 MCG, TID
     Route: 058

REACTIONS (13)
  - Injection site pain [Recovering/Resolving]
  - Needle issue [Recovering/Resolving]
  - Inappropriate schedule of product administration [Recovering/Resolving]
  - Ligament sprain [Recovering/Resolving]
  - Diarrhoea [Recovering/Resolving]
  - Blood pressure systolic increased [Recovering/Resolving]
  - Musculoskeletal pain [Recovering/Resolving]
  - Intestinal obstruction [Recovering/Resolving]
  - Body temperature decreased [Recovering/Resolving]
  - Underdose [Recovering/Resolving]
  - Blood pressure increased [Recovering/Resolving]
  - Drug hypersensitivity [Recovering/Resolving]
  - Pain in extremity [Recovering/Resolving]
